FAERS Safety Report 8346245-X (Version None)
Quarter: 2012Q2

REPORT INFORMATION
  Report Type: 
  Country: None (occurrence: None)
  Receive Date: 20120509
  Receipt Date: 20120502
  Transmission Date: 20120825
  Serious: Yes (Other)
  Sender: FDA-Public Use
  Company Number: US-AMGEN-USASP2012027908

PATIENT
  Sex: Male

DRUGS (6)
  1. KEPPRA [Concomitant]
     Dosage: UNK MG, UNK
  2. HYDROCHLOROTHIAZIDE [Concomitant]
     Dosage: UNK
  3. FLOMAX [Concomitant]
     Dosage: UNK
  4. LUTEIN W/VITAMINS NOS [Concomitant]
     Dosage: UNK
  5. NEULASTA [Suspect]
     Indication: HAEMATOLOGY TEST ABNORMAL
  6. NEULASTA [Suspect]
     Indication: WHITE BLOOD CELL COUNT ABNORMAL
     Dates: start: 20120101

REACTIONS (5)
  - PAIN IN EXTREMITY [None]
  - HYPERHIDROSIS [None]
  - LOSS OF CONSCIOUSNESS [None]
  - BONE PAIN [None]
  - MUSCLE SPASMS [None]
